FAERS Safety Report 13540830 (Version 2)
Quarter: 2017Q2

REPORT INFORMATION
  Report Type: Report from Study
  Country: JP (occurrence: JP)
  Receive Date: 20170512
  Receipt Date: 20170619
  Transmission Date: 20170830
  Serious: Yes (Hospitalization)
  Sender: FDA-Public Use
  Company Number: JP-PFIZER INC-2017206993

PATIENT
  Age: 84 Year
  Sex: Male
  Weight: 64 kg

DRUGS (7)
  1. ITOROL [Concomitant]
     Active Substance: ISOSORBIDE MONONITRATE
     Indication: PRINZMETAL ANGINA
     Dosage: UNK
     Route: 048
  2. CONSTAN /00384601/ [Concomitant]
     Indication: INSOMNIA
     Dosage: UNK
     Route: 048
  3. BOSULIF [Suspect]
     Active Substance: BOSUTINIB MONOHYDRATE
     Indication: CHRONIC MYELOID LEUKAEMIA
     Dosage: 200 MG, DAILY
     Dates: start: 20170411, end: 20170510
  4. OPALMON [Concomitant]
     Active Substance: LIMAPROST
     Indication: PRINZMETAL ANGINA
     Dosage: UNK
     Route: 048
  5. TAKELDA [Concomitant]
     Active Substance: ASPIRIN\LANSOPRAZOLE
     Indication: PRINZMETAL ANGINA
     Dosage: UNK
     Route: 048
  6. SIGMART [Concomitant]
     Active Substance: NICORANDIL
     Indication: PRINZMETAL ANGINA
     Dosage: UNK
     Route: 048
  7. KALGUT [Concomitant]
     Active Substance: DENOPAMINE
     Indication: PRINZMETAL ANGINA
     Dosage: UNK
     Route: 048

REACTIONS (2)
  - Enteritis infectious [Recovered/Resolved]
  - Dehydration [Recovered/Resolved]

NARRATIVE: CASE EVENT DATE: 20170510
